FAERS Safety Report 6688233-5 (Version None)
Quarter: 2010Q2

REPORT INFORMATION
  Report Type: 
  Country: None (occurrence: None)
  Receive Date: 20100420
  Receipt Date: 20100409
  Transmission Date: 20101027
  Serious: No
  Sender: FDA-Public Use
  Company Number: US-JNJFOC-20100203984

PATIENT
  Sex: Male
  Weight: 81.65 kg

DRUGS (2)
  1. FENTANYL [Suspect]
     Indication: ARTHRALGIA
  2. UNKNOWN  MEDICATION [Concomitant]
     Route: 065

REACTIONS (1)
  - WRONG TECHNIQUE IN DRUG USAGE PROCESS [None]
